FAERS Safety Report 20937383 (Version 1)
Quarter: 2022Q2

REPORT INFORMATION
  Report Type: Spontaneous
  Country: US (occurrence: None)
  Receive Date: 20220608
  Receipt Date: 20220608
  Transmission Date: 20220721
  Serious: Yes (Hospitalization)
  Sender: FDA-Public Use
  Company Number: None

PATIENT
  Sex: Female
  Weight: 45.7 kg

DRUGS (3)
  1. TAXOTERE [Suspect]
     Active Substance: DOCETAXEL
     Dates: end: 20220527
  2. PERTUZUMAB [Suspect]
     Active Substance: PERTUZUMAB
     Dates: end: 20220527
  3. HERCEPTIN [Suspect]
     Active Substance: TRASTUZUMAB
     Dates: end: 20220527

REACTIONS (9)
  - Pyrexia [None]
  - Bone pain [None]
  - Nausea [None]
  - Oropharyngeal pain [None]
  - Pain in jaw [None]
  - Headache [None]
  - Blood potassium decreased [None]
  - White blood cell count decreased [None]
  - Diarrhoea [None]

NARRATIVE: CASE EVENT DATE: 20220601
